FAERS Safety Report 11613875 (Version 5)
Quarter: 2015Q4

REPORT INFORMATION
  Report Type: Spontaneous
  Country: FR (occurrence: FR)
  Receive Date: 20151008
  Receipt Date: 20151130
  Transmission Date: 20160304
  Serious: Yes (Hospitalization)
  Sender: FDA-Public Use
  Company Number: FR-ROCHE-1643256

PATIENT
  Age: 58 Year
  Sex: Female
  Weight: 75 kg

DRUGS (7)
  1. PYRIDOSTIGMINE [Concomitant]
     Active Substance: PYRIDOSTIGMINE
     Indication: CONSTIPATION
     Dosage: ONGOING
     Route: 048
     Dates: start: 201508
  2. MORPHIN [Concomitant]
     Active Substance: MORPHINE
     Indication: PAIN
     Dosage: ON GOING
     Route: 048
     Dates: start: 201508
  3. PERJETA [Suspect]
     Active Substance: PERTUZUMAB
     Indication: BREAST CANCER METASTATIC
     Route: 042
     Dates: start: 20150930, end: 20150930
  4. TAXOL [Concomitant]
     Active Substance: PACLITAXEL
  5. HERCEPTIN [Suspect]
     Active Substance: TRASTUZUMAB
     Indication: BREAST CANCER METASTATIC
     Route: 042
     Dates: start: 20150930, end: 20150930
  6. ESOMEPRAZOLE [Concomitant]
     Active Substance: ESOMEPRAZOLE
     Indication: PROPHYLAXIS
     Dosage: ON GOING
     Route: 048
     Dates: start: 201508
  7. AMITRIPTYLINE [Concomitant]
     Active Substance: AMITRIPTYLINE
     Indication: PAIN
     Dosage: ONGOING
     Route: 048
     Dates: start: 201508

REACTIONS (1)
  - Cardiotoxicity [Recovered/Resolved]

NARRATIVE: CASE EVENT DATE: 20150930
